FAERS Safety Report 6120315-9 (Version None)
Quarter: 2009Q1

REPORT INFORMATION
  Report Type: 
  Country: None (occurrence: None)
  Receive Date: 20090312
  Receipt Date: 20090227
  Transmission Date: 20090719
  Serious: Yes (Other)
  Sender: FDA-Public Use
  Company Number: B0564038A

PATIENT
  Age: 69 Year
  Sex: Male

DRUGS (7)
  1. MELPHALAN (FORMULATION UNKNOWN) (GENERIC) (MELPHALAN) [Suspect]
     Indication: BONE MARROW TRANSPLANT
     Dosage: INTRAVENOUS
     Route: 042
  2. FLUDARABINE PHOSPHATE [Suspect]
     Dosage: INTRAVENOUS
     Route: 042
  3. CYCLOPHOSPHAMIDE [Suspect]
     Dosage: INTRAVENOUS
     Route: 042
  4. FILGRASTIM (FORMULATION UNKNOWN) (FILGRASTIM) [Suspect]
  5. LEVOFLOXACIN [Suspect]
  6. ITRACONAZOLE [Suspect]
  7. ZOVIRAX [Suspect]

REACTIONS (3)
  - DRUG TOXICITY [None]
  - FEBRILE NEUTROPENIA [None]
  - MUCOSAL INFLAMMATION [None]
